FAERS Safety Report 9955045 (Version 2)
Quarter: 2014Q1

REPORT INFORMATION
  Report Type: Report from Study
  Country: PR (occurrence: PR)
  Receive Date: 20140304
  Receipt Date: 20140304
  Transmission Date: 20141002
  Serious: Yes (Hospitalization)
  Sender: FDA-Public Use
  Company Number: PR-ABBVIE-12P-131-1023214-00

PATIENT
  Age: 41 Year
  Sex: Male
  Weight: 99.88 kg

DRUGS (2)
  1. HUMIRA [Suspect]
     Indication: CROHN^S DISEASE
     Route: 058
  2. LEXAPRO [Concomitant]
     Indication: ANXIETY
     Route: 048

REACTIONS (2)
  - Crohn^s disease [Recovered/Resolved]
  - Drug ineffective [Recovered/Resolved]
